FAERS Safety Report 6003025-8 (Version None)
Quarter: 2008Q4

REPORT INFORMATION
  Report Type: 
  Country: None (occurrence: None)
  Receive Date: 20081212
  Receipt Date: 20081201
  Transmission Date: 20090506
  Serious: Yes (Hospitalization)
  Sender: FDA-Public Use
  Company Number: 2008AP003295

PATIENT
  Age: 61 Year
  Sex: Female

DRUGS (17)
  1. ALENDRONATE SODIUM [Suspect]
     Indication: OSTEOPOROSIS
     Dosage: 70 MG; PO;QW
     Route: 048
     Dates: start: 20080903, end: 20081112
  2. TENOXICAM (TENOXICAM) [Suspect]
     Indication: SPINAL OSTEOARTHRITIS
     Dosage: 20 MG; PO; QD
     Route: 048
     Dates: start: 20080214, end: 20081112
  3. CALCIUM CARBONATE (CALCIUM CARBONATE) [Concomitant]
  4. COLECALCIFEROL (COLECALCIFEROL) [Concomitant]
  5. AMITRIPTYLINE HYDROCHLORIDE [Concomitant]
  6. BACLOFEN [Concomitant]
  7. BETAHISTINE (BETAHISTINE) [Concomitant]
  8. CODEINE PHOSPHATE (CODEINE PHOSPHATE) [Concomitant]
  9. ACETAMINOPHEN [Concomitant]
  10. DIAZEPAM [Concomitant]
  11. FERROUS SULPHATE (FERROUS SULFATE) [Concomitant]
  12. FLUOXTINE HYDROCHLROIDE (FLUOXTINE HYDROCHLROIDE) [Concomitant]
  13. LANSOPRAZOLE [Concomitant]
  14. PROCHLORPERAZINE MALEATE [Concomitant]
  15. TRAMADOL HYDROCHLRIDE (TRAMADOL HYDROCHLRIDE) [Concomitant]
  16. MORPHINE [Concomitant]
  17. OXYCODONE HCL [Concomitant]

REACTIONS (3)
  - DUODENITIS [None]
  - GASTRIC ULCER [None]
  - GASTRITIS [None]
